FAERS Safety Report 9893327 (Version 1)
Quarter: 2014Q1

REPORT INFORMATION
  Report Type: Spontaneous
  Country: US (occurrence: US)
  Receive Date: 20140213
  Receipt Date: 20140213
  Transmission Date: 20141002
  Serious: Yes (Other)
  Sender: FDA-Public Use
  Company Number: US-JNJFOC-20140203524

PATIENT
  Age: 66 Year
  Sex: Female
  Weight: 90.72 kg

DRUGS (7)
  1. XARELTO [Suspect]
     Indication: THROMBOSIS PROPHYLAXIS
     Route: 048
     Dates: start: 201310, end: 201401
  2. XARELTO [Suspect]
     Indication: HIP SURGERY
     Route: 048
     Dates: start: 201310, end: 201401
  3. ASPIRIN [Concomitant]
     Indication: BLOOD DISORDER
     Route: 048
  4. JANUVIA [Concomitant]
     Indication: DIABETES MELLITUS
     Route: 048
  5. BENICAR [Concomitant]
     Indication: BLOOD PRESSURE
     Route: 048
  6. HYDROCHLOROTHIAZIDE [Concomitant]
     Indication: BLOOD PRESSURE
     Route: 048
  7. CYMBALTA [Concomitant]
     Indication: DEPRESSION
     Route: 048

REACTIONS (6)
  - Vitreous detachment [Recovering/Resolving]
  - Alopecia [Not Recovered/Not Resolved]
  - Gait disturbance [Unknown]
  - Pain in extremity [Unknown]
  - Balance disorder [Recovering/Resolving]
  - Constipation [Recovered/Resolved]
